FAERS Safety Report 9170182 (Version 1)
Quarter: 2013Q1

REPORT INFORMATION
  Report Type: Spontaneous
  Country: FR (occurrence: FR)
  Receive Date: 20130319
  Receipt Date: 20130319
  Transmission Date: 20140127
  Serious: Yes (Other)
  Sender: FDA-Public Use
  Company Number: PHHY2013FR025680

PATIENT
  Age: 67 Year
  Sex: Female

DRUGS (8)
  1. TRILEPTAL [Suspect]
     Indication: EPILEPSY
     Dosage: 300 MG, TID
     Route: 048
     Dates: start: 2004
  2. TRILEPTAL [Suspect]
     Dosage: 300 MG, (6 DF IN MORNING)
     Route: 048
     Dates: start: 20120918, end: 20120918
  3. TRILEPTAL [Suspect]
     Dosage: 300 MG, TID
     Route: 048
     Dates: start: 20120919
  4. KARDEGIC [Concomitant]
  5. ATENOLOL [Concomitant]
  6. PERINDOPRIL [Concomitant]
  7. FUROSEMIDE [Concomitant]
  8. EUPANTOL [Concomitant]

REACTIONS (6)
  - Medication error [Recovered/Resolved]
  - Incorrect dose administered [Recovered/Resolved]
  - Disorientation [Recovered/Resolved]
  - Chest pain [Recovered/Resolved]
  - Dyspnoea [Recovered/Resolved]
  - Asthenia [Recovered/Resolved]
